FAERS Safety Report 10125781 (Version 1)
Quarter: 2014Q2

REPORT INFORMATION
  Report Type: Spontaneous
  Country: IT (occurrence: IT)
  Receive Date: 20140425
  Receipt Date: 20140425
  Transmission Date: 20141212
  Serious: Yes (Other)
  Sender: FDA-Public Use
  Company Number: IT-ACTAVIS-2014-08059

PATIENT
  Age: 84 Year
  Sex: Male

DRUGS (1)
  1. CLOPIDOGREL (UNKNOWN) [Suspect]
     Indication: ISCHAEMIC STROKE
     Dosage: 75 MG, DAILY
     Route: 048
     Dates: start: 20140314, end: 20140315

REACTIONS (3)
  - Malaise [Recovered/Resolved]
  - Headache [Recovered/Resolved]
  - Pyrexia [Recovered/Resolved]
